FAERS Safety Report 9492365 (Version 1)
Quarter: 2013Q3

REPORT INFORMATION
  Report Type: Spontaneous
  Country: US (occurrence: US)
  Receive Date: 20130830
  Receipt Date: 20130830
  Transmission Date: 20140515
  Serious: Yes (Other)
  Sender: FDA-Public Use
  Company Number: US-TEVA-428977USA

PATIENT
  Age: 46 Year
  Sex: Female

DRUGS (4)
  1. PROVIGIL [Suspect]
     Route: 048
  2. BUTRANS [Suspect]
     Dates: end: 201305
  3. ANXIETY MEDICATION [Concomitant]
  4. LYRICA [Concomitant]
     Indication: FIBROMYALGIA

REACTIONS (7)
  - Brain injury [Unknown]
  - Aneurysm [Unknown]
  - Weight decreased [Unknown]
  - Restlessness [Unknown]
  - Muscle atrophy [Unknown]
  - Burning sensation [Unknown]
  - Muscle spasms [Unknown]
